FAERS Safety Report 6980787-4 (Version None)
Quarter: 2010Q3

REPORT INFORMATION
  Report Type: 
  Country: None (occurrence: None)
  Receive Date: 20100914
  Receipt Date: 20100902
  Transmission Date: 20110219
  Serious: Yes (Other)
  Sender: FDA-Public Use
  Company Number: GB-PFIZER INC-2010111333

PATIENT
  Age: 77 Year
  Sex: Male

DRUGS (2)
  1. PHENYTOIN [Suspect]
     Dosage: UNK
     Route: 048
     Dates: start: 20100729, end: 20100826
  2. WARFARIN [Concomitant]

REACTIONS (2)
  - LEUKOPENIA [None]
  - MOUTH ULCERATION [None]
